FAERS Safety Report 8921161 (Version 2)
Quarter: 2013Q1

REPORT INFORMATION
  Report Type: Spontaneous
  Country: IT (occurrence: IT)
  Receive Date: 20121123
  Receipt Date: 20130218
  Transmission Date: 20140127
  Serious: Yes (Hospitalization)
  Sender: FDA-Public Use
  Company Number: IT-MERCK-1211ITA008850

PATIENT
  Age: 40 Year
  Sex: Male

DRUGS (3)
  1. PEGINTRON [Suspect]
     Indication: HEPATITIS C
     Dosage: 80 MICROGRAM, UNK
     Route: 058
     Dates: start: 20120810, end: 20120810
  2. PEGINTRON [Suspect]
     Dosage: 80 MICROGRAM, UNK
     Route: 058
     Dates: start: 2012
  3. ASACOL [Concomitant]
     Dosage: 2400 MG, UNK
     Route: 048

REACTIONS (4)
  - Retching [Recovered/Resolved]
  - Malaise [Recovered/Resolved]
  - Abdominal pain [Recovered/Resolved]
  - Pyrexia [Recovered/Resolved]
